FAERS Safety Report 9754267 (Version 1)
Quarter: 2013Q4

REPORT INFORMATION
  Report Type: Spontaneous
  Country: US (occurrence: US)
  Receive Date: 20131213
  Receipt Date: 20131213
  Transmission Date: 20140711
  Serious: No
  Sender: FDA-Public Use
  Company Number: US-TEVA-408960USA

PATIENT
  Age: 27 Year
  Sex: Female
  Weight: 66.28 kg

DRUGS (2)
  1. PARAGARD 380A [Suspect]
     Indication: CONTRACEPTION
     Route: 015
     Dates: start: 20130521, end: 20130524
  2. PRENATAL VITAMINS [Concomitant]

REACTIONS (1)
  - Device expulsion [Recovered/Resolved]
